FAERS Safety Report 10483978 (Version 1)
Quarter: 2014Q3

REPORT INFORMATION
  Report Type: Spontaneous
  Country: US (occurrence: None)
  Receive Date: 20140926
  Receipt Date: 20140926
  Transmission Date: 20150326
  Serious: Yes (Other)
  Sender: FDA-Public Use
  Company Number: 2014HINLIT0866

PATIENT
  Age: 60 Year
  Sex: Male

DRUGS (10)
  1. TENOFOVIR [Concomitant]
     Active Substance: TENOFOVIR
  2. FLUTICASONE PROPIONATE. [Suspect]
     Active Substance: FLUTICASONE PROPIONATE
     Indication: PRODUCT USED FOR UNKNOWN INDICATION
     Dosage: 1000, UNKNOWN
  3. BUDESONIDE. [Concomitant]
     Active Substance: BUDESONIDE
  4. SAQUINAVIR [Suspect]
     Active Substance: SAQUINAVIR
     Indication: HIV INFECTION
  5. ATAZANAVIR [Concomitant]
     Active Substance: ATAZANAVIR
  6. SALMETEROL [Concomitant]
     Active Substance: SALMETEROL
  7. RITONAVIR [Concomitant]
     Active Substance: RITONAVIR
  8. LAMIVUDINE. [Suspect]
     Active Substance: LAMIVUDINE
     Indication: HIV INFECTION
  9. NELFINAVIR [Suspect]
     Active Substance: NELFINAVIR
     Indication: PRODUCT USED FOR UNKNOWN INDICATION
  10. ZIDOVUDINE. [Suspect]
     Active Substance: ZIDOVUDINE
     Indication: HIV INFECTION

REACTIONS (12)
  - Cellulitis [None]
  - Weight increased [None]
  - Parotid gland enlargement [None]
  - Drug interaction [None]
  - Gynaecomastia [None]
  - Face oedema [None]
  - Herpes simplex [None]
  - Asthenia [None]
  - Cushing^s syndrome [None]
  - Relapsing fever [None]
  - Oedema [None]
  - Diarrhoea [None]
